FAERS Safety Report 4800573-0 (Version None)
Quarter: 2005Q4

REPORT INFORMATION
  Report Type: 
  Country: None (occurrence: None)
  Receive Date: 20051011
  Receipt Date: 20050927
  Transmission Date: 20060501
  Serious: Yes (Hospitalization)
  Sender: FDA-Public Use
  Company Number: 2005135313

PATIENT
  Age: 70 Year
  Sex: Male

DRUGS (5)
  1. ATORVASTATIN CALCIUM [Suspect]
     Indication: ILL-DEFINED DISORDER
     Dosage: 10 MG (1 IN 1 D), ORAL
     Route: 048
  2. LOSARTAN POTASSIUM AND HYDROCHLOROTHIAZIDE [Suspect]
     Indication: ILL-DEFINED DISORDER
     Dosage: 1 DOSE FORM (1 IN 1 D), ORAL
     Route: 048
  3. LOGIMAX (FELODIPINE, METOPROLOL SUCCINATE) [Suspect]
     Indication: ILL-DEFINED DISORDER
     Dosage: 5/47.5 MG (1 IN 1 D), ORAL
     Route: 048
  4. TIORFAN (ACETORPHAN) [Suspect]
     Indication: ILL-DEFINED DISORDER
     Dosage: 200 MG (100 MG, 2 IN 1 D), ORAL
     Route: 048
  5. LOPERAMIDE [Suspect]
     Indication: ILL-DEFINED DISORDER
     Dosage: ORAL
     Route: 048

REACTIONS (6)
  - ANGIOPATHY [None]
  - ASTHENIA [None]
  - HAEMORRHAGIC FEVER [None]
  - HEPATITIS ACUTE [None]
  - RENAL FAILURE ACUTE [None]
  - VIRAL INFECTION [None]
